FAERS Safety Report 13334302 (Version 1)
Quarter: 2017Q1

REPORT INFORMATION
  Report Type: Spontaneous
  Country: MX (occurrence: MX)
  Receive Date: 20170314
  Receipt Date: 20170314
  Transmission Date: 20170428
  Serious: Yes (Other)
  Sender: FDA-Public Use
  Company Number: MX-PFIZER INC-2017108438

PATIENT
  Age: 86 Year
  Sex: Female

DRUGS (11)
  1. ERANZ [Suspect]
     Active Substance: DONEPEZIL HYDROCHLORIDE
  2. EFEXOR [Suspect]
     Active Substance: VENLAFAXINE HYDROCHLORIDE
  3. XALATAN [Suspect]
     Active Substance: LATANOPROST
  4. IMODIUM [Concomitant]
     Active Substance: LOPERAMIDE HYDROCHLORIDE
  5. XALACOM [Suspect]
     Active Substance: LATANOPROST\TIMOLOL MALEATE
  6. AKATINOL [Concomitant]
  7. MODIODAL [Concomitant]
     Active Substance: MODAFINIL
  8. PLAVIX [Concomitant]
     Active Substance: CLOPIDOGREL BISULFATE
  9. GAAP [Concomitant]
  10. ATACAND PLUS [Concomitant]
     Active Substance: CANDESARTAN CILEXETIL\HYDROCHLOROTHIAZIDE
  11. RISPERDAL [Concomitant]
     Active Substance: RISPERIDONE

REACTIONS (1)
  - Dementia Alzheimer^s type [Unknown]
